FAERS Safety Report 14896756 (Version 2)
Quarter: 2018Q3

REPORT INFORMATION
  Report Type: Spontaneous
  Country: US (occurrence: US)
  Receive Date: 20180515
  Receipt Date: 20180710
  Transmission Date: 20181010
  Serious: No
  Sender: FDA-Public Use
  Company Number: US-ALKERMES INC.-ALK-2018-002586

PATIENT
  Age: 33 Year
  Sex: Male
  Weight: 68.27 kg

DRUGS (1)
  1. VIVITROL [Suspect]
     Active Substance: NALTREXONE
     Indication: DRUG DEPENDENCE
     Dosage: 380 MG, QMO
     Route: 030

REACTIONS (3)
  - Pain [Not Recovered/Not Resolved]
  - Substance abuse [Not Recovered/Not Resolved]
  - Drug dependence [Not Recovered/Not Resolved]
